FAERS Safety Report 12722497 (Version 1)
Quarter: 2016Q3

REPORT INFORMATION
  Report Type: Spontaneous
  Country: US (occurrence: US)
  Receive Date: 20160907
  Receipt Date: 20160907
  Transmission Date: 20161109
  Serious: No
  Sender: FDA-Public Use
  Company Number: US-GLAXOSMITHKLINE-US2016130162

PATIENT
  Age: 52 Year
  Sex: Female

DRUGS (11)
  1. SUMATRIPTAN SUCCINATE TABLET [Concomitant]
     Active Substance: SUMATRIPTAN SUCCINATE
  2. SYNTHROID [Concomitant]
     Active Substance: LEVOTHYROXINE SODIUM
  3. VITAMIN C [Concomitant]
     Active Substance: ASCORBIC ACID
  4. BREO ELLIPTA [Suspect]
     Active Substance: FLUTICASONE FUROATE\VILANTEROL TRIFENATATE
     Indication: WHEEZING
     Dosage: 1 PUFF(S), 1D
     Route: 055
     Dates: start: 20160808
  5. BIOTIN [Concomitant]
     Active Substance: BIOTIN
  6. ESTRADIOL. [Concomitant]
     Active Substance: ESTRADIOL
  7. OMEGA 3 [Concomitant]
     Active Substance: OMEGA-3 FATTY ACIDS
  8. LYRICA [Concomitant]
     Active Substance: PREGABALIN
  9. CYMBALTA [Concomitant]
     Active Substance: DULOXETINE HYDROCHLORIDE
  10. FENTANYL. [Concomitant]
     Active Substance: FENTANYL
  11. BREO ELLIPTA [Suspect]
     Active Substance: FLUTICASONE FUROATE\VILANTEROL TRIFENATATE
     Indication: COUGH

REACTIONS (9)
  - Stress [Unknown]
  - Sneezing [Unknown]
  - Sinusitis [Unknown]
  - Anosmia [Unknown]
  - Ocular discomfort [Unknown]
  - Ear pain [Unknown]
  - Peripheral swelling [Not Recovered/Not Resolved]
  - Ageusia [Unknown]
  - Lymphadenopathy [Unknown]

NARRATIVE: CASE EVENT DATE: 201608
